FAERS Safety Report 25856778 (Version 1)
Quarter: 2025Q3

REPORT INFORMATION
  Report Type: Spontaneous
  Country: US (occurrence: US)
  Receive Date: 20250929
  Receipt Date: 20250929
  Transmission Date: 20251021
  Serious: No
  Sender: GLAXOSMITHKLINE
  Company Number: US-GSK-US2025111005

PATIENT
  Age: 32 Year
  Sex: Female

DRUGS (1)
  1. NUCALA [Suspect]
     Active Substance: MEPOLIZUMAB
     Indication: Asthma
     Dosage: 100 MG, Q4W

REACTIONS (6)
  - Injection site pain [Unknown]
  - Injection site haemorrhage [Unknown]
  - Exposure via skin contact [Unknown]
  - Product dose omission issue [Unknown]
  - Product complaint [Unknown]
  - Accidental exposure to product [Unknown]

NARRATIVE: CASE EVENT DATE: 20250828
